FAERS Safety Report 15158380 (Version 6)
Quarter: 2025Q3

REPORT INFORMATION
  Report Type: Spontaneous
  Country: EU (occurrence: EU)
  Receive Date: 20180718
  Receipt Date: 20250707
  Transmission Date: 20251021
  Serious: Yes (Other)
  Sender: MYLAN
  Company Number: EU-NOVPHSZ-PHHY2017DE122111

PATIENT
  Age: 8 Year
  Sex: Male

DRUGS (56)
  1. TACROLIMUS [Suspect]
     Active Substance: TACROLIMUS
     Indication: Bone marrow conditioning regimen
  2. TACROLIMUS [Suspect]
     Active Substance: TACROLIMUS
     Route: 042
  3. TACROLIMUS [Suspect]
     Active Substance: TACROLIMUS
     Route: 042
  4. TACROLIMUS [Suspect]
     Active Substance: TACROLIMUS
  5. TACROLIMUS [Suspect]
     Active Substance: TACROLIMUS
     Indication: Stem cell transplant
  6. TACROLIMUS [Suspect]
     Active Substance: TACROLIMUS
     Route: 048
  7. TACROLIMUS [Suspect]
     Active Substance: TACROLIMUS
     Route: 048
  8. TACROLIMUS [Suspect]
     Active Substance: TACROLIMUS
  9. FLUDARABINE [Suspect]
     Active Substance: FLUDARABINE PHOSPHATE
     Indication: Bone marrow conditioning regimen
     Dosage: 30 MG/M2, QD,ON DAYS -7 TO -3 OF THE HSCT
  10. FLUDARABINE [Suspect]
     Active Substance: FLUDARABINE PHOSPHATE
     Dosage: 30 MG/M2, QD,ON DAYS -7 TO -3 OF THE HSCT
     Route: 065
  11. FLUDARABINE [Suspect]
     Active Substance: FLUDARABINE PHOSPHATE
     Dosage: 30 MG/M2, QD,ON DAYS -7 TO -3 OF THE HSCT
     Route: 065
  12. FLUDARABINE [Suspect]
     Active Substance: FLUDARABINE PHOSPHATE
     Dosage: 30 MG/M2, QD,ON DAYS -7 TO -3 OF THE HSCT
  13. MYCOPHENOLATE MOFETIL [Suspect]
     Active Substance: MYCOPHENOLATE MOFETIL
     Indication: Bone marrow conditioning regimen
     Dosage: 15 MG/KG, TID 15 MG/KG, QD FROM DAY +5 TO DAY +35
  14. MYCOPHENOLATE MOFETIL [Suspect]
     Active Substance: MYCOPHENOLATE MOFETIL
     Dosage: 15 MG/KG, TID 15 MG/KG, QD FROM DAY +5 TO DAY +35
  15. MYCOPHENOLATE MOFETIL [Suspect]
     Active Substance: MYCOPHENOLATE MOFETIL
     Dosage: 15 MG/KG, TID 15 MG/KG, QD FROM DAY +5 TO DAY +35
     Route: 048
  16. MYCOPHENOLATE MOFETIL [Suspect]
     Active Substance: MYCOPHENOLATE MOFETIL
     Dosage: 15 MG/KG, TID 15 MG/KG, QD FROM DAY +5 TO DAY +35
     Route: 048
  17. MYCOPHENOLATE MOFETIL [Suspect]
     Active Substance: MYCOPHENOLATE MOFETIL
  18. MYCOPHENOLATE MOFETIL [Suspect]
     Active Substance: MYCOPHENOLATE MOFETIL
  19. MYCOPHENOLATE MOFETIL [Suspect]
     Active Substance: MYCOPHENOLATE MOFETIL
     Route: 065
  20. MYCOPHENOLATE MOFETIL [Suspect]
     Active Substance: MYCOPHENOLATE MOFETIL
     Route: 065
  21. CYCLOPHOSPHAMIDE [Suspect]
     Active Substance: CYCLOPHOSPHAMIDE
     Indication: Stem cell transplant
     Dosage: 14.5 MG/KG, QDON DAYS -3 AND -2 OF THE HSCT
  22. CYCLOPHOSPHAMIDE [Suspect]
     Active Substance: CYCLOPHOSPHAMIDE
     Indication: Prophylaxis against graft versus host disease
     Dosage: 14.5 MG/KG, QDON DAYS -3 AND -2 OF THE HSCT
  23. CYCLOPHOSPHAMIDE [Suspect]
     Active Substance: CYCLOPHOSPHAMIDE
     Indication: Bone marrow conditioning regimen
     Dosage: 14.5 MG/KG, QDON DAYS -3 AND -2 OF THE HSCT
     Route: 065
  24. CYCLOPHOSPHAMIDE [Suspect]
     Active Substance: CYCLOPHOSPHAMIDE
     Dosage: 14.5 MG/KG, QDON DAYS -3 AND -2 OF THE HSCT
     Route: 065
  25. CYCLOPHOSPHAMIDE [Suspect]
     Active Substance: CYCLOPHOSPHAMIDE
     Dosage: 50 MG/KG, QD,ON DAYS +3 AND +4 OF THE HSCT
  26. CYCLOPHOSPHAMIDE [Suspect]
     Active Substance: CYCLOPHOSPHAMIDE
     Dosage: 50 MG/KG, QD,ON DAYS +3 AND +4 OF THE HSCT
  27. CYCLOPHOSPHAMIDE [Suspect]
     Active Substance: CYCLOPHOSPHAMIDE
     Dosage: 50 MG/KG, QD,ON DAYS +3 AND +4 OF THE HSCT
     Route: 065
  28. CYCLOPHOSPHAMIDE [Suspect]
     Active Substance: CYCLOPHOSPHAMIDE
     Dosage: 50 MG/KG, QD,ON DAYS +3 AND +4 OF THE HSCT
     Route: 065
  29. ALEMTUZUMAB [Suspect]
     Active Substance: ALEMTUZUMAB
     Indication: Bone marrow conditioning regimen
     Dosage: 0.2 MG/KG, QD,ON DAYS -9 AND -8 OF THE HSCT
     Route: 065
  30. ALEMTUZUMAB [Suspect]
     Active Substance: ALEMTUZUMAB
     Dosage: 0.2 MG/KG, QD,ON DAYS -9 AND -8 OF THE HSCT
  31. ALEMTUZUMAB [Suspect]
     Active Substance: ALEMTUZUMAB
     Dosage: 0.2 MG/KG, QD,ON DAYS -9 AND -8 OF THE HSCT
  32. ALEMTUZUMAB [Suspect]
     Active Substance: ALEMTUZUMAB
     Dosage: 0.2 MG/KG, QD,ON DAYS -9 AND -8 OF THE HSCT
     Route: 065
  33. ALEMTUZUMAB [Suspect]
     Active Substance: ALEMTUZUMAB
     Dosage: 0.2 MG/KG,QD; ON DAY -9 AND -8
     Route: 065
  34. ALEMTUZUMAB [Suspect]
     Active Substance: ALEMTUZUMAB
     Dosage: 0.2 MG/KG,QD; ON DAY -9 AND -8
  35. ALEMTUZUMAB [Suspect]
     Active Substance: ALEMTUZUMAB
     Dosage: 0.2 MG/KG,QD; ON DAY -9 AND -8
  36. ALEMTUZUMAB [Suspect]
     Active Substance: ALEMTUZUMAB
     Dosage: 0.2 MG/KG,QD; ON DAY -9 AND -8
     Route: 065
  37. THIOTEPA [Suspect]
     Active Substance: THIOTEPA
     Indication: Bone marrow conditioning regimen
     Dosage: 5 MG/KG, BID ON DAY -4,2 DOSAGES 5 MG/KG DAILY
  38. THIOTEPA [Suspect]
     Active Substance: THIOTEPA
     Dosage: 5 MG/KG, BID ON DAY -4,2 DOSAGES 5 MG/KG DAILY
     Route: 065
  39. THIOTEPA [Suspect]
     Active Substance: THIOTEPA
     Dosage: 5 MG/KG, BID ON DAY -4,2 DOSAGES 5 MG/KG DAILY
     Route: 065
  40. THIOTEPA [Suspect]
     Active Substance: THIOTEPA
     Dosage: 5 MG/KG, BID ON DAY -4,2 DOSAGES 5 MG/KG DAILY
  41. TREOSULFAN [Suspect]
     Active Substance: TREOSULFAN
     Indication: Bone marrow conditioning regimen
     Dosage: 14 G/M2, QD, DAYS -7 TO -5 OF THE HSCT
  42. TREOSULFAN [Suspect]
     Active Substance: TREOSULFAN
     Dosage: 14 G/M2, QD, DAYS -7 TO -5 OF THE HSCT
     Route: 065
  43. TREOSULFAN [Suspect]
     Active Substance: TREOSULFAN
     Dosage: 14 G/M2, QD, DAYS -7 TO -5 OF THE HSCT
     Route: 065
  44. TREOSULFAN [Suspect]
     Active Substance: TREOSULFAN
     Dosage: 14 G/M2, QD, DAYS -7 TO -5 OF THE HSCT
  45. HYDROXYUREA [Concomitant]
     Active Substance: HYDROXYUREA
     Indication: Sickle cell disease
  46. HYDROXYUREA [Concomitant]
     Active Substance: HYDROXYUREA
     Route: 065
  47. HYDROXYUREA [Concomitant]
     Active Substance: HYDROXYUREA
     Route: 065
  48. HYDROXYUREA [Concomitant]
     Active Substance: HYDROXYUREA
  49. LEVETIRACETAM [Concomitant]
     Active Substance: LEVETIRACETAM
     Indication: Seizure prophylaxis
  50. LEVETIRACETAM [Concomitant]
     Active Substance: LEVETIRACETAM
     Indication: Prophylaxis
     Route: 065
  51. LEVETIRACETAM [Concomitant]
     Active Substance: LEVETIRACETAM
     Route: 065
  52. LEVETIRACETAM [Concomitant]
     Active Substance: LEVETIRACETAM
  53. GRANULOCYTE COLONY-STIMULATING FACTOR NOS [Concomitant]
     Active Substance: GRANULOCYTE COLONY-STIMULATING FACTOR NOS
     Indication: Product used for unknown indication
     Dosage: 5 MICROGRAM, QD,5 UG, QD, 5 G/KG/DAY FROM DAY +5 UNTIL ENGRAFTMENT
  54. GRANULOCYTE COLONY-STIMULATING FACTOR NOS [Concomitant]
     Active Substance: GRANULOCYTE COLONY-STIMULATING FACTOR NOS
     Dosage: 5 MICROGRAM, QD,5 UG, QD, 5 G/KG/DAY FROM DAY +5 UNTIL ENGRAFTMENT
     Route: 042
  55. GRANULOCYTE COLONY-STIMULATING FACTOR NOS [Concomitant]
     Active Substance: GRANULOCYTE COLONY-STIMULATING FACTOR NOS
     Dosage: 5 MICROGRAM, QD,5 UG, QD, 5 G/KG/DAY FROM DAY +5 UNTIL ENGRAFTMENT
     Route: 042
  56. GRANULOCYTE COLONY-STIMULATING FACTOR NOS [Concomitant]
     Active Substance: GRANULOCYTE COLONY-STIMULATING FACTOR NOS
     Dosage: 5 MICROGRAM, QD,5 UG, QD, 5 G/KG/DAY FROM DAY +5 UNTIL ENGRAFTMENT

REACTIONS (4)
  - Mucosal inflammation [Unknown]
  - Cytomegalovirus infection reactivation [Recovered/Resolved]
  - Graft versus host disease in skin [Unknown]
  - Product use in unapproved indication [Unknown]
